FAERS Safety Report 5027880-3 (Version None)
Quarter: 2006Q2

REPORT INFORMATION
  Report Type: 
  Country: None (occurrence: None)
  Receive Date: 20060616
  Receipt Date: 20060510
  Transmission Date: 20061013
  Serious: Yes (Hospitalization, Other)
  Sender: FDA-Public Use
  Company Number: US-AMGEN-US179164

PATIENT
  Sex: Female
  Weight: 59 kg

DRUGS (21)
  1. PROCRIT [Suspect]
     Indication: RENAL FAILURE CHRONIC
     Route: 058
     Dates: start: 20050728, end: 20060317
  2. NEUPOGEN [Concomitant]
     Indication: NEUTROPENIA
     Dates: start: 20051021
  3. PROGRAF [Concomitant]
     Dates: start: 20060331
  4. CELLCEPT [Concomitant]
     Dates: start: 20050725
  5. RIBAVIRIN [Concomitant]
     Dates: start: 20050627, end: 20060208
  6. CIPROFLOXACIN HCL [Concomitant]
  7. GENGRAF [Concomitant]
     Dates: start: 20050608
  8. PHENAZOPYRIDINE [Concomitant]
     Dates: start: 20051206
  9. SULFAMETHOXAZOLE [Concomitant]
     Dates: start: 20051206
  10. OXYBUTYNIN [Concomitant]
     Dates: start: 20051215
  11. PEGASYS [Concomitant]
     Dates: start: 20050713
  12. FOSAMAX [Concomitant]
     Dates: start: 20060127
  13. AMOXICILLIN [Concomitant]
     Dates: start: 20060217
  14. OMEPRAZOLE [Concomitant]
  15. LEVAQUIN [Concomitant]
     Dates: start: 20060411
  16. TEMAZEPAM [Concomitant]
     Dates: start: 20051128
  17. PERCODAN [Concomitant]
  18. METOPROLOL TARTRATE [Concomitant]
     Dates: start: 20060515
  19. NORTRIPTYLINE HCL [Concomitant]
     Dates: start: 20050819
  20. ESTRACE [Concomitant]
     Dates: start: 20050921
  21. PROMETHAZINE [Concomitant]
     Dates: start: 20051003

REACTIONS (4)
  - APLASIA PURE RED CELL [None]
  - NEUTROPENIA [None]
  - PLATELET COUNT DECREASED [None]
  - RENAL FAILURE ACUTE [None]
